FAERS Safety Report 6245592-5 (Version None)
Quarter: 2009Q2

REPORT INFORMATION
  Report Type: 
  Country: None (occurrence: None)
  Receive Date: 20090625
  Receipt Date: 20090623
  Transmission Date: 20091009
  Serious: Yes (Disabling)
  Sender: FDA-Public Use
  Company Number: US-ABBOTT-09P-163-0581432-00

PATIENT
  Sex: Female
  Weight: 52.21 kg

DRUGS (1)
  1. ERYTHROMYCIN BASE FILMTAB 500MG [Suspect]
     Indication: ECZEMA
     Route: 048
     Dates: start: 20090401, end: 20090501

REACTIONS (3)
  - DEAFNESS [None]
  - TINNITUS [None]
  - VERTIGO [None]
